FAERS Safety Report 21457242 (Version 4)
Quarter: 2023Q1

REPORT INFORMATION
  Report Type: Spontaneous
  Country: US (occurrence: US)
  Receive Date: 20221014
  Receipt Date: 20230214
  Transmission Date: 20230418
  Serious: No
  Sender: FDA-Public Use
  Company Number: US-BIOVITRUM-2022US11122

PATIENT
  Age: 76 Year
  Sex: Male

DRUGS (16)
  1. KINERET [Suspect]
     Active Substance: ANAKINRA
     Indication: Gout
     Dates: start: 20220923
  2. KINERET [Suspect]
     Active Substance: ANAKINRA
     Indication: Rheumatoid arthritis
     Dates: start: 20220909
  3. KINERET [Suspect]
     Active Substance: ANAKINRA
     Dates: start: 20220913
  4. TRAMADOL [Concomitant]
     Active Substance: TRAMADOL
     Indication: Hip arthroplasty
     Dosage: OFF FOR 2 DAYS AGO
  5. OMEPRAZOLE [Concomitant]
     Active Substance: OMEPRAZOLE
  6. ALLOPURINOL [Concomitant]
     Active Substance: ALLOPURINOL
  7. EZETIMIBE [Concomitant]
     Active Substance: EZETIMIBE
  8. ASPIRIN [Concomitant]
     Active Substance: ASPIRIN
     Indication: Hip arthroplasty
  9. FLOMAX [Concomitant]
     Active Substance: TAMSULOSIN HYDROCHLORIDE
  10. RANOLAZINE [Concomitant]
     Active Substance: RANOLAZINE
  11. ATORVASTATIN [Concomitant]
     Active Substance: ATORVASTATIN
  12. COLCHICINE [Concomitant]
     Active Substance: COLCHICINE
  13. AMLODIPINE [Concomitant]
     Active Substance: AMLODIPINE BESYLATE
  14. OXYCODONE [Concomitant]
     Active Substance: OXYCODONE
     Indication: Pain
  15. CELEBREX [Concomitant]
     Active Substance: CELECOXIB
     Indication: Hip arthroplasty
  16. LEFUNAMIDE [Concomitant]

REACTIONS (9)
  - Dizziness [Unknown]
  - Joint swelling [Unknown]
  - Blood testosterone increased [Unknown]
  - Injection site reaction [Unknown]
  - Injection site erythema [Unknown]
  - Injection site rash [Unknown]
  - Injection site pain [Unknown]
  - Injection site discomfort [Unknown]
  - Off label use [Recovered/Resolved]

NARRATIVE: CASE EVENT DATE: 20220909
